FAERS Safety Report 8984066 (Version 1)
Quarter: 2012Q4

REPORT INFORMATION
  Report Type: Spontaneous
  Country: US (occurrence: None)
  Receive Date: 20121213
  Receipt Date: 20121213
  Transmission Date: 20130627
  Serious: Yes (Hospitalization, Disabling)
  Sender: FDA-Public Use
  Company Number: PR-AE12-000556

PATIENT
  Sex: Male

DRUGS (3)
  1. ECOTRIN [Suspect]
     Route: 048
  2. AGGRENOX (ASPIRIN/EXTENDED-RELEASE DIPYRIDAMOLE) [Concomitant]
  3. UNSPECIFIED MEDICATION FOR HIGH BLOOD PRESSURE [Concomitant]

REACTIONS (2)
  - Cerebrovascular accident [None]
  - Blindness unilateral [None]
